FAERS Safety Report 5575238-0 (Version None)
Quarter: 2007Q4

REPORT INFORMATION
  Report Type: 
  Country: None (occurrence: None)
  Receive Date: 20071130
  Receipt Date: 20070803
  Transmission Date: 20080405
  Serious: No
  Sender: FDA-Public Use
  Company Number: US200708000992

PATIENT
  Age: 83 Year
  Sex: Female

DRUGS (8)
  1. BYETTA [Suspect]
     Indication: TYPE 2 DIABETES MELLITUS
     Dosage: SEE IMAGE
     Route: 058
     Dates: start: 20070717, end: 20070701
  2. BYETTA [Suspect]
     Indication: TYPE 2 DIABETES MELLITUS
     Dosage: SEE IMAGE
     Route: 058
     Dates: start: 20070723, end: 20070701
  3. BYETTA [Suspect]
     Indication: TYPE 2 DIABETES MELLITUS
     Dosage: SEE IMAGE
     Route: 058
     Dates: start: 20070705, end: 20070711
  4. BYETTA [Suspect]
     Indication: TYPE 2 DIABETES MELLITUS
     Dosage: SEE IMAGE
     Route: 058
     Dates: start: 20070712, end: 20070717
  5. BYETTA [Suspect]
     Indication: TYPE 2 DIABETES MELLITUS
     Dosage: SEE IMAGE
     Route: 058
     Dates: start: 20070724, end: 20070726
  6. STARLIZ (NATEGLINIDE) [Concomitant]
  7. GLIPIZIDE [Concomitant]
  8. AVANDIA [Concomitant]

REACTIONS (6)
  - BLOOD GLUCOSE ABNORMAL [None]
  - BLOOD GLUCOSE INCREASED [None]
  - DIARRHOEA [None]
  - DYSGEUSIA [None]
  - EYE LASER SURGERY [None]
  - NAUSEA [None]
